FAERS Safety Report 13614398 (Version 5)
Quarter: 2017Q4

REPORT INFORMATION
  Report Type: Spontaneous
  Country: FR (occurrence: FR)
  Receive Date: 20170606
  Receipt Date: 20171230
  Transmission Date: 20180320
  Serious: Yes (Hospitalization, Other)
  Sender: FDA-Public Use
  Company Number: FR-AUROBINDO-AUR-APL-2017-34832

PATIENT
  Age: 61 Year
  Sex: Female

DRUGS (8)
  1. CLARITHROMYCIN. [Suspect]
     Active Substance: CLARITHROMYCIN
     Indication: PEPTIC ULCER
     Dosage: ()
     Route: 065
  2. OMEPRAZOLE. [Concomitant]
     Active Substance: OMEPRAZOLE
     Dosage: 20 MG, QD
  3. AMOXICILLIN. [Suspect]
     Active Substance: AMOXICILLIN
     Indication: PEPTIC ULCER
     Dosage: ()
     Route: 065
  4. OMEPRAZOLE. [Concomitant]
     Active Substance: OMEPRAZOLE
     Indication: HELICOBACTER INFECTION
     Dosage: 20 MG, TWO TIMES A DAY
     Route: 065
  5. METRONIDAZOLE. [Suspect]
     Active Substance: METRONIDAZOLE
     Indication: HELICOBACTER INFECTION
     Dosage: 500 MG, QD
     Route: 065
     Dates: start: 201206
  6. AMOXICILLIN. [Suspect]
     Active Substance: AMOXICILLIN
     Indication: HELICOBACTER INFECTION
     Dosage: 1 G, QD
     Route: 065
     Dates: start: 201206
  7. METRONIDAZOLE. [Suspect]
     Active Substance: METRONIDAZOLE
     Indication: PEPTIC ULCER
     Dosage: UNK
     Route: 065
  8. CLARITHROMYCIN. [Suspect]
     Active Substance: CLARITHROMYCIN
     Indication: HELICOBACTER INFECTION
     Dosage: 500 MG, QD
     Route: 065
     Dates: start: 201206

REACTIONS (12)
  - Disinhibition [Recovered/Resolved]
  - Psychomotor hyperactivity [Recovered/Resolved]
  - Logorrhoea [Recovered/Resolved]
  - Cyclothymic disorder [Recovered/Resolved]
  - Bipolar disorder [Recovered/Resolved]
  - Mania [Recovered/Resolved]
  - Aggression [Recovered/Resolved]
  - Irritability [Recovered/Resolved]
  - Agitation [Recovered/Resolved]
  - Delusion [Recovered/Resolved]
  - Insomnia [Recovered/Resolved]
  - Product use in unapproved indication [Unknown]

NARRATIVE: CASE EVENT DATE: 201206
